FAERS Safety Report 16201806 (Version 1)
Quarter: 2019Q2

REPORT INFORMATION
  Report Type: Spontaneous
  Country: US (occurrence: US)
  Receive Date: 20190415
  Receipt Date: 20190415
  Transmission Date: 20190711
  Serious: Yes (Other)
  Sender: FDA-Public Use
  Company Number: None

PATIENT
  Age: 54 Year
  Sex: Female
  Weight: 58.5 kg

DRUGS (6)
  1. DIPHEN/ATROP [Concomitant]
     Active Substance: ATROPINE SULFATE\DIPHENOXYLATE
  2. HYOSCYAMINE. [Concomitant]
     Active Substance: HYOSCYAMINE
  3. MELOXICAM. [Concomitant]
     Active Substance: MELOXICAM
  4. VENLAFAXINE [Suspect]
     Active Substance: VENLAFAXINE HYDROCHLORIDE
     Indication: IRRITABLE BOWEL SYNDROME
     Dosage: ?          QUANTITY:1 TABLET(S);?
     Route: 048
     Dates: start: 20190411, end: 20190411
  5. PROPRANOLOL [Concomitant]
     Active Substance: PROPRANOLOL HYDROCHLORIDE
  6. SUMATRIPTAN. [Concomitant]
     Active Substance: SUMATRIPTAN

REACTIONS (2)
  - Loss of consciousness [None]
  - Heart rate increased [None]

NARRATIVE: CASE EVENT DATE: 20190411
